FAERS Safety Report 15344150 (Version 1)
Quarter: 2018Q3

REPORT INFORMATION
  Report Type: Spontaneous
  Country: CH (occurrence: CH)
  Receive Date: 20180903
  Receipt Date: 20180903
  Transmission Date: 20181010
  Serious: Yes (Other)
  Sender: FDA-Public Use
  Company Number: CH-GLAXOSMITHKLINE-CH2018GSK152634

PATIENT
  Sex: Female

DRUGS (3)
  1. VENTOLIN [Suspect]
     Active Substance: ALBUTEROL SULFATE
     Dosage: 1.25 UNK, UNK
     Route: 055
  2. VENTOLIN [Suspect]
     Active Substance: ALBUTEROL SULFATE
     Indication: PRODUCT USED FOR UNKNOWN INDICATION
     Dosage: 1.25 MG, UNK
     Route: 055
  3. VENTOLIN [Suspect]
     Active Substance: ALBUTEROL SULFATE
     Dosage: 1.25 UNK, UNK
     Route: 055

REACTIONS (6)
  - Pulmonary oedema [Not Recovered/Not Resolved]
  - Pericardial effusion [Not Recovered/Not Resolved]
  - Oedema peripheral [Not Recovered/Not Resolved]
  - Drug ineffective [Not Recovered/Not Resolved]
  - Hepatotoxicity [Not Recovered/Not Resolved]
  - Palpitations [Not Recovered/Not Resolved]

NARRATIVE: CASE EVENT DATE: 2018
